FAERS Safety Report 13985342 (Version 4)
Quarter: 2018Q1

REPORT INFORMATION
  Report Type: Report from Study
  Country: AT (occurrence: AT)
  Receive Date: 20170919
  Receipt Date: 20180122
  Transmission Date: 20180508
  Serious: Yes (Hospitalization, Disabling, Other)
  Sender: FDA-Public Use
  Company Number: AT-ROCHE-1957728

PATIENT
  Age: 4 Month
  Sex: Female
  Weight: 4.5 kg

DRUGS (4)
  1. RANIBIZUMAB. [Suspect]
     Active Substance: RANIBIZUMAB
     Indication: RETINOPATHY OF PREMATURITY
     Dosage: 0.1 MG
     Route: 050
     Dates: start: 20170620, end: 20170620
  2. FOSFOMYCIN [Concomitant]
     Active Substance: FOSFOMYCIN
     Indication: PRODUCT USED FOR UNKNOWN INDICATION
     Dosage: UNK
     Route: 065
  3. OFLOXACINE [Concomitant]
     Active Substance: OFLOXACIN
     Indication: PRODUCT USED FOR UNKNOWN INDICATION
     Dosage: UNK
     Route: 065
  4. LASER THERAPY [Suspect]
     Active Substance: DEVICE
     Indication: RETINOPATHY OF PREMATURITY
     Dosage: RIGHT EYE
     Route: 065
     Dates: start: 20170822

REACTIONS (5)
  - Orbital infection [Recovered/Resolved]
  - Macular fibrosis [Not Recovered/Not Resolved]
  - Retinopathy of prematurity [Recovered/Resolved with Sequelae]
  - Endophthalmitis [Not Recovered/Not Resolved]
  - Exophthalmos [Not Recovered/Not Resolved]

NARRATIVE: CASE EVENT DATE: 20170626
